FAERS Safety Report 8271389-0 (Version None)
Quarter: 2012Q2

REPORT INFORMATION
  Report Type: 
  Country: None (occurrence: None)
  Receive Date: 20120410
  Receipt Date: 20120309
  Transmission Date: 20120825
  Serious: No
  Sender: FDA-Public Use
  Company Number: US-NOVEN-12US004246

PATIENT
  Age: 87 Year
  Sex: Male

DRUGS (2)
  1. FENTANYL CITRATE [Suspect]
     Indication: PRODUCT USED FOR UNKNOWN INDICATION
     Dosage: 25 UG/HR, UNK
     Route: 062
     Dates: start: 20020101
  2. AVODART [Concomitant]
     Indication: HYPERTONIC BLADDER
     Dosage: UNK
     Route: 048

REACTIONS (2)
  - DRY MOUTH [None]
  - PRODUCT QUALITY ISSUE [None]
